FAERS Safety Report 24448514 (Version 2)
Quarter: 2024Q4

REPORT INFORMATION
  Report Type: Report from Study
  Country: US (occurrence: US)
  Receive Date: 20241017
  Receipt Date: 20241122
  Transmission Date: 20250115
  Serious: Yes (Other)
  Sender: UCB
  Company Number: US-UCBSA-2024049346

PATIENT
  Sex: Male
  Weight: 260 kg

DRUGS (3)
  1. ROTIGOTINE [Suspect]
     Active Substance: ROTIGOTINE
     Indication: Parkinson^s disease
     Dosage: 2 MILLIGRAM, ONCE DAILY (QD)
     Route: 062
     Dates: start: 20120915
  2. ROTIGOTINE [Suspect]
     Active Substance: ROTIGOTINE
     Indication: Restless legs syndrome
     Dosage: 4 MILLIGRAM, ONCE DAILY (QD)
     Route: 062
  3. ROTIGOTINE [Suspect]
     Active Substance: ROTIGOTINE
     Dosage: 2 MILLIGRAM, ONCE DAILY (QD)
     Route: 062

REACTIONS (7)
  - Atrial fibrillation [Not Recovered/Not Resolved]
  - Restless legs syndrome [Not Recovered/Not Resolved]
  - Insomnia [Unknown]
  - Product adhesion issue [Unknown]
  - Intentional product misuse [Unknown]
  - Product quality issue [Unknown]
  - Product dose omission issue [Unknown]
